FAERS Safety Report 8032163-3 (Version None)
Quarter: 2012Q1

REPORT INFORMATION
  Report Type: 
  Country: None (occurrence: None)
  Receive Date: 20120109
  Receipt Date: 20111215
  Transmission Date: 20120608
  Serious: Yes (Death)
  Sender: FDA-Public Use
  Company Number: PHHY2011NL95313

PATIENT
  Sex: Female
  Weight: 66 kg

DRUGS (4)
  1. ZOMETA [Suspect]
     Indication: BREAST CANCER METASTATIC
     Dosage: 4 MG/5 ML
     Route: 042
     Dates: start: 20110606, end: 20111015
  2. GEMZAR [Concomitant]
  3. NEXIUM [Concomitant]
  4. ORADEXON TAB [Concomitant]

REACTIONS (1)
  - BREAST CANCER METASTATIC [None]
